FAERS Safety Report 4959078-9 (Version None)
Quarter: 2006Q1

REPORT INFORMATION
  Report Type: 
  Country: None (occurrence: None)
  Receive Date: 20060331
  Receipt Date: 20060203
  Transmission Date: 20060701
  Serious: Yes (Disabling)
  Sender: FDA-Public Use
  Company Number: PHBS2006PT01914

PATIENT
  Age: 71 Year
  Sex: Female

DRUGS (2)
  1. LESCOL XL [Suspect]
     Dosage: 80 MG/DAY
     Route: 048
     Dates: start: 20051208, end: 20051209
  2. PRAVASTATIN [Concomitant]
     Dosage: 20 MG/DAY
     Route: 048
     Dates: start: 20051008, end: 20051207

REACTIONS (5)
  - BED REST [None]
  - BURNING SENSATION [None]
  - CHILLS [None]
  - MALAISE [None]
  - VOMITING [None]
